FAERS Safety Report 6097182-5 (Version None)
Quarter: 2009Q1

REPORT INFORMATION
  Report Type: 
  Country: None (occurrence: None)
  Receive Date: 20090227
  Receipt Date: 20090225
  Transmission Date: 20090719
  Serious: Yes (Disabling, Other)
  Sender: FDA-Public Use
  Company Number: A0770209A

PATIENT
  Age: 30 Year
  Sex: Male

DRUGS (4)
  1. LAMICTAL [Suspect]
     Indication: MIGRAINE PROPHYLAXIS
     Route: 048
     Dates: start: 20080401, end: 20080501
  2. LYRICA [Concomitant]
  3. ZANAFLEX [Concomitant]
  4. TRAMADOL HCL [Concomitant]

REACTIONS (12)
  - ABDOMINAL DISTENSION [None]
  - ABDOMINAL PAIN [None]
  - ASTHENIA [None]
  - GASTRITIS [None]
  - GASTROINTESTINAL HYPOMOTILITY [None]
  - GINGIVAL DISORDER [None]
  - IMPAIRED GASTRIC EMPTYING [None]
  - MOUTH ULCERATION [None]
  - NAUSEA [None]
  - RASH ERYTHEMATOUS [None]
  - RASH MORBILLIFORM [None]
  - VOMITING [None]
